FAERS Safety Report 8906971 (Version 4)
Quarter: 2013Q1

REPORT INFORMATION
  Report Type: Spontaneous
  Country: AU (occurrence: AU)
  Receive Date: 20121114
  Receipt Date: 20130114
  Transmission Date: 20140127
  Serious: Yes (Disabling, Other)
  Sender: FDA-Public Use
  Company Number: AU-ASTRAZENECA-2012SE84224

PATIENT
  Age: 930 Month
  Sex: Female

DRUGS (5)
  1. ARIMIDEX [Suspect]
     Indication: BREAST CANCER
     Route: 048
  2. ACLASTA [Suspect]
     Indication: OSTEOPENIA
     Route: 041
     Dates: start: 20111206, end: 20111206
  3. ACLASTA [Suspect]
     Indication: OSTEOPENIA
     Route: 041
     Dates: start: 201212
  4. CRESTOR [Concomitant]
     Indication: DIABETES MELLITUS
     Route: 048
  5. DIAMICRON [Concomitant]
     Indication: DIABETES MELLITUS

REACTIONS (17)
  - Mobility decreased [Recovering/Resolving]
  - Hypokinesia [Recovering/Resolving]
  - Dizziness [Recovered/Resolved]
  - Fall [Recovered/Resolved]
  - Syncope [Recovered/Resolved]
  - Head injury [Recovered/Resolved]
  - Neck injury [Recovered/Resolved]
  - Joint injury [Recovered/Resolved]
  - Hyperhidrosis [Recovered/Resolved]
  - Bedridden [Recovered/Resolved]
  - Influenza like illness [Recovering/Resolving]
  - Local swelling [Recovering/Resolving]
  - Muscle tightness [Recovering/Resolving]
  - Myalgia [Recovered/Resolved]
  - Hypersomnia [Recovering/Resolving]
  - Rash generalised [Recovered/Resolved]
  - Drug hypersensitivity [Not Recovered/Not Resolved]
